FAERS Safety Report 5153667-7 (Version None)
Quarter: 2006Q4

REPORT INFORMATION
  Report Type: 
  Country: None (occurrence: None)
  Receive Date: 20061114
  Receipt Date: 20061026
  Transmission Date: 20070319
  Serious: Yes (Death)
  Sender: FDA-Public Use
  Company Number: 225598

PATIENT
  Age: 43 Year
  Sex: Female
  Weight: 67 kg

DRUGS (7)
  1. HERCEPTIN [Suspect]
     Indication: SKIN CANCER
     Dosage: 6 MG/KG, Q3W, INTRAVENOUS; 8 MG/KG, SINGLE, IV BOLUS
     Route: 042
     Dates: end: 20060509
  2. HERCEPTIN [Suspect]
     Indication: SKIN CANCER
     Dosage: 6 MG/KG, Q3W, INTRAVENOUS; 8 MG/KG, SINGLE, IV BOLUS
     Route: 042
     Dates: start: 20060306
  3. XELODA [Suspect]
     Indication: SKIN CANCER
     Dosage: 1000 MG/M2, BID, INTRAVENOUS
     Route: 042
     Dates: start: 20060306, end: 20060424
  4. NAVELBINE [Concomitant]
  5. CHEMOTHERAPY (ANTINEOPLASTIC AGENT NOS) [Concomitant]
  6. NACL 0.9 (SODIUM CHLORIDE) [Concomitant]
  7. ZOMETA [Concomitant]

REACTIONS (13)
  - ANAPHYLACTIC SHOCK [None]
  - ANXIETY [None]
  - CIRCULATORY COLLAPSE [None]
  - COUGH [None]
  - FEELING HOT [None]
  - HAEMATOCRIT DECREASED [None]
  - INFUSION RELATED REACTION [None]
  - PALMAR-PLANTAR ERYTHRODYSAESTHESIA SYNDROME [None]
  - PARAESTHESIA [None]
  - PULMONARY OEDEMA [None]
  - PYREXIA [None]
  - RALES [None]
  - RESTLESSNESS [None]
